FAERS Safety Report 13671434 (Version 1)
Quarter: 2017Q2

REPORT INFORMATION
  Report Type: Spontaneous
  Country: US (occurrence: US)
  Receive Date: 20170620
  Receipt Date: 20170620
  Transmission Date: 20170830
  Serious: No
  Sender: FDA-Public Use
  Company Number: US-ROCHE-1265190

PATIENT
  Age: 75 Year
  Sex: Female

DRUGS (1)
  1. XELODA [Suspect]
     Active Substance: CAPECITABINE
     Indication: COLON CANCER
     Dosage: 14 DAYS ON 7 DAYS OFF, STOPPED ON 21/AUG/2013
     Route: 048

REACTIONS (4)
  - Fatigue [Unknown]
  - Gastrointestinal motility disorder [Unknown]
  - Metastatic neoplasm [Unknown]
  - Pain [Unknown]

NARRATIVE: CASE EVENT DATE: 20130819
